FAERS Safety Report 9822602 (Version 2)
Quarter: 2014Q1

REPORT INFORMATION
  Report Type: Spontaneous
  Country: US (occurrence: US)
  Receive Date: 20140116
  Receipt Date: 20140129
  Transmission Date: 20141002
  Serious: Yes (Death)
  Sender: FDA-Public Use
  Company Number: US-BIOGENIDEC-2014BI001728

PATIENT
  Age: 34 Year
  Sex: Male
  Weight: 68 kg

DRUGS (21)
  1. TECFIDERA [Suspect]
     Indication: MULTIPLE SCLEROSIS
     Route: 048
     Dates: start: 20130615
  2. TECFIDERA [Suspect]
     Indication: MULTIPLE SCLEROSIS
     Route: 048
     Dates: start: 201307
  3. AMPYRA [Concomitant]
  4. ASCORBIC ACID [Concomitant]
  5. BACLOFEN [Concomitant]
  6. DIPHENHYDRAMINE [Concomitant]
  7. DOCUSATE SODIUM [Concomitant]
  8. DULOXETINE [Concomitant]
  9. FERROUS GLUCONATE [Concomitant]
  10. GABAPENTIN [Concomitant]
  11. HYDROCODONE [Concomitant]
  12. ACETAMINOPHEN [Concomitant]
  13. IBUPROFEN [Concomitant]
  14. LISINOPRIL [Concomitant]
  15. LORATADINE [Concomitant]
  16. MELATONIN [Concomitant]
  17. OMEGA-3 FATTY ACID [Concomitant]
  18. ROPINIROLE [Concomitant]
  19. TEMAZEPAM [Concomitant]
  20. TIZANIDINE [Concomitant]
  21. TRAZODONE [Concomitant]

REACTIONS (1)
  - Death [Fatal]
